FAERS Safety Report 25174117 (Version 1)
Quarter: 2025Q2

REPORT INFORMATION
  Report Type: Spontaneous
  Country: US (occurrence: US)
  Receive Date: 20250408
  Receipt Date: 20250408
  Transmission Date: 20250716
  Serious: No
  Sender: SANOFI AVENTIS
  Company Number: US-SA-2025SA100003

PATIENT
  Sex: Female
  Weight: 72.73 kg

DRUGS (14)
  1. DUPIXENT [Suspect]
     Active Substance: DUPILUMAB
     Dosage: 300 MG, QOW
     Route: 058
  2. DUPIXENT [Suspect]
     Active Substance: DUPILUMAB
     Dosage: 300 MG, Q4W
     Route: 058
  3. AZITHROMYCIN [Concomitant]
     Active Substance: AZITHROMYCIN
  4. HALOPERIDOL LACTATE [Concomitant]
     Active Substance: HALOPERIDOL LACTATE
  5. LORAZEPAM [Concomitant]
     Active Substance: LORAZEPAM
  6. HYOSCYAMINE SULFATE [Concomitant]
     Active Substance: HYOSCYAMINE SULFATE
  7. MORPHINE SULFATE [Concomitant]
     Active Substance: MORPHINE SULFATE
  8. LEVALBUTEROL [Concomitant]
     Active Substance: LEVALBUTEROL
  9. ALENDRONATE SODIUM [Concomitant]
     Active Substance: ALENDRONATE SODIUM
  10. ELIQUIS [Concomitant]
     Active Substance: APIXABAN
  11. BUMETANIDE [Concomitant]
     Active Substance: BUMETANIDE
  12. METOPROLOL TARTRATE [Concomitant]
     Active Substance: METOPROLOL TARTRATE
  13. SYNTHROID [Concomitant]
     Active Substance: LEVOTHYROXINE SODIUM
  14. POTASSIUM CHLORIDE [Concomitant]
     Active Substance: POTASSIUM CHLORIDE

REACTIONS (2)
  - General physical health deterioration [Unknown]
  - Off label use [Unknown]
